FAERS Safety Report 5467236-2 (Version None)
Quarter: 2007Q3

REPORT INFORMATION
  Report Type: 
  Country: None (occurrence: None)
  Receive Date: 20070925
  Receipt Date: 20050819
  Transmission Date: 20080115
  Serious: Yes (Hospitalization, Other)
  Sender: FDA-Public Use
  Company Number: HQWYE628827AUG04

PATIENT
  Sex: Male
  Weight: 76 kg

DRUGS (10)
  1. RAPAMUNE [Suspect]
     Indication: PROPHYLAXIS AGAINST TRANSPLANT REJECTION
     Dosage: LOADING DOSE OF 15 MG THEN 5 MG DAILY (EXACT DATES NOT SPECIFIED)
     Route: 048
     Dates: start: 20040821, end: 20040824
  2. SIMVASTATIN [Concomitant]
     Route: 048
  3. ZETIA [Concomitant]
     Route: 048
  4. QUININE [Concomitant]
     Dosage: UNSPECIFIED
     Route: 065
  5. EPOGEN [Concomitant]
     Dosage: UNSPECIFIED
     Route: 065
  6. REGLAN [Concomitant]
     Dosage: UNSPECIFIED
     Route: 065
  7. ISONIAZID [Concomitant]
     Route: 065
  8. LASIX [Concomitant]
     Route: 048
  9. CARVEDILOL [Concomitant]
     Route: 048
  10. PLAVIX [Concomitant]
     Route: 048
     Dates: end: 20040801

REACTIONS (9)
  - BLOOD BICARBONATE DECREASED [None]
  - MYOCARDIAL INFARCTION [None]
  - OXYGEN SATURATION DECREASED [None]
  - PCO2 INCREASED [None]
  - PO2 DECREASED [None]
  - RENAL HAEMORRHAGE [None]
  - VENTRICULAR EXTRASYSTOLES [None]
  - WHITE BLOOD CELL COUNT INCREASED [None]
  - WOUND DEHISCENCE [None]
